FAERS Safety Report 20353627 (Version 4)
Quarter: 2024Q2

REPORT INFORMATION
  Report Type: Report from Study
  Country: FR (occurrence: FR)
  Receive Date: 20220120
  Receipt Date: 20240606
  Transmission Date: 20240716
  Serious: Yes (Other)
  Sender: FDA-Public Use
  Company Number: FR-ABBVIE-21K-056-4081245-00

PATIENT
  Age: 65 Year
  Sex: Female
  Weight: 94 kg

DRUGS (6)
  1. UPADACITINIB [Suspect]
     Active Substance: UPADACITINIB
     Indication: Rheumatoid arthritis
     Route: 048
     Dates: start: 20210610, end: 20210630
  2. UPADACITINIB [Suspect]
     Active Substance: UPADACITINIB
     Indication: Rheumatoid arthritis
     Route: 048
     Dates: start: 20210718, end: 20211206
  3. INFLUENZA VIRUS VACCINE [Concomitant]
     Active Substance: INFLUENZA VIRUS VACCINE
     Indication: Prophylaxis
     Dosage: TIME INTERVAL: 1 TOTAL
     Route: 030
     Dates: start: 20211113, end: 20211113
  4. SARS-CoV-2 vaccine [Concomitant]
     Indication: COVID-19 prophylaxis
     Dosage: TIME INTERVAL: TOTAL
     Route: 030
     Dates: start: 202103, end: 202103
  5. SARS-CoV-2 vaccine [Concomitant]
     Indication: COVID-19 prophylaxis
     Dosage: TIME INTERVAL: TOTAL
     Route: 030
     Dates: start: 20210423, end: 20210423
  6. SARS-CoV-2 vaccine [Concomitant]
     Indication: COVID-19 prophylaxis
     Dosage: TIME INTERVAL: TOTAL
     Route: 030
     Dates: start: 20211013, end: 20211013

REACTIONS (5)
  - Basal cell carcinoma [Recovered/Resolved]
  - Asthenia [Not Recovered/Not Resolved]
  - Weight increased [Not Recovered/Not Resolved]
  - Fatigue [Not Recovered/Not Resolved]
  - Drug ineffective [Unknown]

NARRATIVE: CASE EVENT DATE: 20210615
